FAERS Safety Report 7486363-1 (Version None)
Quarter: 2011Q2

REPORT INFORMATION
  Report Type: 
  Country: None (occurrence: None)
  Receive Date: 20110517
  Receipt Date: 20110511
  Transmission Date: 20111010
  Serious: Yes (Death, Hospitalization, Other)
  Sender: FDA-Public Use
  Company Number: PHHY2011FR40091

PATIENT
  Sex: Male

DRUGS (15)
  1. ALLOPURINOL [Concomitant]
     Dosage: 20 MG, UNK
  2. GLUCOPHAGE [Concomitant]
     Dosage: 1000 MG, UNK
     Route: 048
  3. INSULIN ASPART [Concomitant]
     Dosage: 100 IU/ML, UNK
  4. KETOPROFEN [Suspect]
     Dosage: 2.5 %, UNK
     Route: 061
     Dates: end: 20110305
  5. LASIX [Concomitant]
     Dosage: 500 MG, UNK
     Route: 048
  6. CLARADOL CAFFEINE [Concomitant]
     Dosage: 500 MG, UNK
     Route: 048
  7. DIFFU K [Concomitant]
     Dosage: 600 MG, UNK
  8. ENALAPRIL/HCT [Concomitant]
     Dosage: 1 DF, UNK
  9. SINTROM [Suspect]
     Dosage: 4 MG, UNK
     Route: 048
     Dates: end: 20110305
  10. NOVOMIX [Concomitant]
     Dosage: 30 MG, UNK
  11. DIGOXIN [Concomitant]
     Dosage: 0.25 MG, UNK
     Route: 048
  12. MOVIPREP [Concomitant]
  13. INSULINE [Concomitant]
  14. ATORVASTATIN CALCIUM [Concomitant]
     Dosage: 20 MG, UNK
     Route: 048
  15. SERESTA [Concomitant]
     Dosage: 50 MG, UNK
     Route: 048

REACTIONS (8)
  - C-REACTIVE PROTEIN INCREASED [None]
  - HEADACHE [None]
  - WHITE BLOOD CELL COUNT INCREASED [None]
  - GENERAL PHYSICAL HEALTH DETERIORATION [None]
  - BLOOD CREATININE INCREASED [None]
  - INTRAVENTRICULAR HAEMORRHAGE [None]
  - CEREBROVASCULAR ACCIDENT [None]
  - INTRACRANIAL PRESSURE INCREASED [None]
